FAERS Safety Report 18232582 (Version 3)
Quarter: 2020Q4

REPORT INFORMATION
  Report Type: Spontaneous
  Country: US (occurrence: US)
  Receive Date: 20200904
  Receipt Date: 20201117
  Transmission Date: 20210113
  Serious: No
  Sender: FDA-Public Use
  Company Number: US-PFIZER INC-2020341893

PATIENT
  Age: 69 Year
  Sex: Female
  Weight: 61.23 kg

DRUGS (3)
  1. PREGABALIN. [Suspect]
     Active Substance: PREGABALIN
     Indication: FACIAL NEURALGIA
     Dosage: 300 MG, DAILY (3 CAPSULES A DAY, 100 MG)
     Dates: end: 202008
  2. PREGABALIN. [Suspect]
     Active Substance: PREGABALIN
     Indication: NEURALGIA
  3. PREGABALIN. [Suspect]
     Active Substance: PREGABALIN
     Indication: NEPHROPATHY

REACTIONS (1)
  - Drug ineffective [Unknown]

NARRATIVE: CASE EVENT DATE: 202008
